FAERS Safety Report 4505938-2 (Version None)
Quarter: 2004Q4

REPORT INFORMATION
  Report Type: 
  Country: None (occurrence: None)
  Receive Date: 20041119
  Receipt Date: 20041101
  Transmission Date: 20050328
  Serious: Yes (Hospitalization)
  Sender: FDA-Public Use
  Company Number: PHBS2004JP14746

PATIENT
  Age: 37 Year
  Sex: Female
  Weight: 88 kg

DRUGS (7)
  1. RITALIN [Suspect]
     Indication: DEPRESSION
     Dosage: 60 MG/DAY
     Route: 048
     Dates: start: 20011214
  2. DEPROMEL [Concomitant]
     Indication: DEPRESSION
     Dosage: 50 MG/D
     Route: 048
     Dates: start: 20011214, end: 20030914
  3. TETRAMIDE [Concomitant]
     Indication: DEPRESSION
     Dosage: 30 MG/DAY
     Route: 048
     Dates: start: 20011214, end: 20030901
  4. LEXOTAN [Concomitant]
     Indication: ANXIETY DISORDER
     Dosage: 15 MG/D
     Route: 048
     Dates: start: 20011214, end: 20030901
  5. HALCION [Concomitant]
     Indication: INSOMNIA
     Dosage: 0.5 MG/D
     Route: 048
     Dates: start: 20011214
  6. SILECE [Concomitant]
     Indication: INSOMNIA
     Dosage: 4 MG/D
     Route: 048
     Dates: start: 20011214
  7. VITAMIN A [Concomitant]
     Indication: INSOMNIA
     Dosage: 1 DF/D
     Route: 048
     Dates: start: 20011214

REACTIONS (8)
  - AGGRESSION [None]
  - CONFUSIONAL STATE [None]
  - CRYING [None]
  - DEPRESSED LEVEL OF CONSCIOUSNESS [None]
  - DRUG DEPENDENCE [None]
  - INTENTIONAL OVERDOSE [None]
  - THERAPEUTIC AGENT TOXICITY [None]
  - VOMITING [None]
